FAERS Safety Report 7260281-6 (Version None)
Quarter: 2011Q1

REPORT INFORMATION
  Report Type: 
  Country: None (occurrence: None)
  Receive Date: 20110130
  Receipt Date: 20100907
  Transmission Date: 20110831
  Serious: No
  Sender: FDA-Public Use
  Company Number: US-ABBOTT-10P-163-0670160-00

PATIENT
  Sex: Male
  Weight: 145.28 kg

DRUGS (4)
  1. HUMIRA [Suspect]
     Indication: PSORIATIC ARTHROPATHY
     Route: 058
     Dates: start: 20100625
  2. GABAPENTIN [Concomitant]
     Route: 048
     Dates: start: 20100801
  3. METHOTREXATE [Concomitant]
     Indication: PRODUCT USED FOR UNKNOWN INDICATION
     Dosage: TAKEN DAY BEFORE HUMIRA
     Route: 048
  4. GABAPENTIN [Concomitant]
     Indication: NEUROPATHY PERIPHERAL
     Route: 048
     Dates: end: 20100801

REACTIONS (4)
  - INFLUENZA LIKE ILLNESS [None]
  - NEURALGIA [None]
  - INJECTION SITE HAEMORRHAGE [None]
  - FATIGUE [None]
